FAERS Safety Report 10268683 (Version 1)
Quarter: 2014Q2

REPORT INFORMATION
  Report Type: Spontaneous
  Country: US (occurrence: US)
  Receive Date: 20140630
  Receipt Date: 20140630
  Transmission Date: 20141212
  Serious: No
  Sender: FDA-Public Use
  Company Number: US-PFIZER INC-2014177195

PATIENT
  Sex: Male
  Weight: 90.7 kg

DRUGS (8)
  1. LYRICA [Suspect]
     Indication: FIBROMYALGIA
     Dosage: 50 MG, 3X/DAY
     Route: 048
  2. LYRICA [Suspect]
     Indication: BURNING SENSATION
  3. LISINOPRIL [Concomitant]
     Indication: HYPERTENSION
     Dosage: UNK
  4. METOPROLOL [Concomitant]
     Indication: HYPERTENSION
     Dosage: UNK
  5. NORCO [Concomitant]
     Indication: ANALGESIC THERAPY
     Dosage: UNK
  6. GLIPIZIDE [Concomitant]
     Indication: DIABETES MELLITUS
     Dosage: UNK
  7. INSULIN [Concomitant]
     Indication: DIABETES MELLITUS
     Dosage: 50 IU, UNK
  8. INSULIN [Concomitant]
     Dosage: 42 IU, UNK

REACTIONS (1)
  - Hearing impaired [Unknown]
